FAERS Safety Report 21138040 (Version 1)
Quarter: 2022Q3

REPORT INFORMATION
  Report Type: Report from Study
  Country: US (occurrence: US)
  Receive Date: 20220727
  Receipt Date: 20220727
  Transmission Date: 20221027
  Serious: Yes (Hospitalization, Disabling)
  Sender: FDA-Public Use
  Company Number: US-GLAXOSMITHKLINE-US2022GSK108985

PATIENT

DRUGS (13)
  1. DOSTARLIMAB [Suspect]
     Active Substance: DOSTARLIMAB
     Indication: Breast cancer
     Dosage: 500 MG, Z-Q3W
     Route: 042
     Dates: start: 20211027, end: 20211027
  2. DOSTARLIMAB [Suspect]
     Active Substance: DOSTARLIMAB
     Dosage: 500 MG, Z-Q3W
     Route: 042
     Dates: start: 20220118, end: 20220118
  3. PACLITAXEL [Suspect]
     Active Substance: PACLITAXEL
     Indication: Breast cancer
     Dosage: 420 MG, 12.9 MG, Z-3 DAYS/CYCLE
     Route: 048
     Dates: start: 20211027, end: 20220118
  4. ACETAMINOPHEN [Concomitant]
     Active Substance: ACETAMINOPHEN
     Indication: Pain prophylaxis
     Dosage: 650 MG, PRN
     Route: 048
     Dates: start: 20211026
  5. GLUMETZA [Concomitant]
     Active Substance: METFORMIN HYDROCHLORIDE
     Indication: Hyperglycaemia
     Dosage: 1000 MG, QD
     Route: 048
     Dates: start: 20220422, end: 20220701
  6. NAPROXEN [Concomitant]
     Active Substance: NAPROXEN
     Indication: Pain prophylaxis
     Dosage: 375 MG, BID
     Route: 048
     Dates: start: 20220426, end: 20220701
  7. ADVIL [Concomitant]
     Active Substance: IBUPROFEN
     Indication: Pain prophylaxis
     Dosage: 600 MG, PRN
     Route: 048
     Dates: start: 20220604
  8. MOTRIN [Concomitant]
     Active Substance: IBUPROFEN
     Indication: Pain prophylaxis
     Dosage: 600 MG, QD
     Route: 048
     Dates: start: 20220604
  9. PRILOSEC [Concomitant]
     Active Substance: OMEPRAZOLE MAGNESIUM
     Indication: Nausea
     Dosage: 40 MG, QD
     Route: 048
     Dates: start: 20220604, end: 20220701
  10. ONDANSETRON [Concomitant]
     Active Substance: ONDANSETRON
     Indication: Nausea
     Dosage: 4 MG, PRN
     Route: 048
     Dates: start: 20220602, end: 20220602
  11. CYCLOBENZAPRINE [Concomitant]
     Active Substance: CYCLOBENZAPRINE
     Indication: Muscle spasms
     Dosage: 1 DF, TID
     Route: 048
     Dates: start: 20220701
  12. RADIATION THERAPY [Concomitant]
     Active Substance: RADIATION THERAPY
     Indication: Product used for unknown indication
     Dosage: UNK
     Dates: start: 20220601
  13. ENCEQUIDAR MESYLATE MONOHYDRATE [Suspect]
     Active Substance: ENCEQUIDAR MESYLATE MONOHYDRATE

REACTIONS (1)
  - Gastritis [Not Recovered/Not Resolved]

NARRATIVE: CASE EVENT DATE: 20220616
